FAERS Safety Report 21039492 (Version 1)
Quarter: 2022Q3

REPORT INFORMATION
  Report Type: Spontaneous
  Country: BR (occurrence: BR)
  Receive Date: 20220704
  Receipt Date: 20220704
  Transmission Date: 20221027
  Serious: Yes (Other)
  Sender: FDA-Public Use
  Company Number: BR-NOVARTISPH-NVSC2022BR151402

PATIENT
  Sex: Male
  Weight: 96 kg

DRUGS (1)
  1. TEGRETOL XR [Suspect]
     Active Substance: CARBAMAZEPINE
     Indication: Trigeminal neuralgia
     Dosage: 1200 MG (1.5 TABLETS IN THE MORNING / 1.5 TABLET IN THE AFTERNOON)
     Route: 048

REACTIONS (1)
  - Facial pain [Not Recovered/Not Resolved]
